FAERS Safety Report 11822352 (Version 12)
Quarter: 2018Q1

REPORT INFORMATION
  Report Type: Spontaneous
  Country: US (occurrence: US)
  Receive Date: 20151210
  Receipt Date: 20180224
  Transmission Date: 20180508
  Serious: Yes (Hospitalization)
  Sender: FDA-Public Use
  Company Number: US-JNJFOC-20151000339

PATIENT
  Age: 76 Year
  Sex: Female
  Weight: 58 kg

DRUGS (13)
  1. CALCIUM CARBONATE W/COLECALCIFEROL [Concomitant]
     Active Substance: CALCIUM CARBONATE\CHOLECALCIFEROL
     Indication: SUPPLEMENTATION THERAPY
     Dosage: 1 PILL QD
     Route: 048
  2. PREDNISONE. [Concomitant]
     Active Substance: PREDNISONE
     Indication: CHRONIC LYMPHOCYTIC LEUKAEMIA
  3. IMBRUVICA [Suspect]
     Active Substance: IBRUTINIB
     Indication: CHRONIC LYMPHOCYTIC LEUKAEMIA
     Route: 048
     Dates: start: 20150916, end: 20151105
  4. NPLATE [Concomitant]
     Active Substance: ROMIPLOSTIM
     Indication: CHRONIC LYMPHOCYTIC LEUKAEMIA
     Dosage: UNK UNK, Q WEEKLY
     Dates: start: 2015
  5. IMBRUVICA [Suspect]
     Active Substance: IBRUTINIB
     Indication: CHRONIC LYMPHOCYTIC LEUKAEMIA
     Route: 048
     Dates: start: 20160105, end: 2016
  6. PRAVACHOL [Concomitant]
     Active Substance: PRAVASTATIN SODIUM
     Indication: BLOOD CHOLESTEROL ABNORMAL
     Dosage: 80 MG, QD
     Route: 048
  7. BIOTIN [Concomitant]
     Active Substance: BIOTIN
  8. PRAVACHOL [Concomitant]
     Active Substance: PRAVASTATIN SODIUM
     Indication: BLOOD CHOLESTEROL INCREASED
     Dosage: 80 MG, QD
     Route: 048
  9. NPLATE [Concomitant]
     Active Substance: ROMIPLOSTIM
     Indication: PLATELET COUNT ABNORMAL
     Dosage: UNK UNK, Q WEEKLY
     Dates: start: 2015
  10. NPLATE [Concomitant]
     Active Substance: ROMIPLOSTIM
     Indication: PLATELET COUNT DECREASED
     Dosage: UNK UNK, Q WEEKLY
     Dates: start: 2015
  11. IMBRUVICA [Suspect]
     Active Substance: IBRUTINIB
     Indication: CHRONIC LYMPHOCYTIC LEUKAEMIA
     Dosage: UNK
     Route: 048
     Dates: start: 20151112, end: 201512
  12. IMBRUVICA [Suspect]
     Active Substance: IBRUTINIB
     Indication: CHRONIC LYMPHOCYTIC LEUKAEMIA
     Route: 048
     Dates: start: 201601
  13. MULTIVITAMINS [Concomitant]
     Active Substance: VITAMINS
     Indication: SUPPLEMENTATION THERAPY
     Dosage: 1 PILL QD

REACTIONS (21)
  - Neutrophil count decreased [Recovering/Resolving]
  - White blood cell count increased [Recovered/Resolved]
  - Oral infection [Recovering/Resolving]
  - Platelet count increased [Recovered/Resolved]
  - Muscle spasms [Recovering/Resolving]
  - Pain in extremity [Not Recovered/Not Resolved]
  - Dental restoration failure [Recovering/Resolving]
  - Gingival discomfort [Recovering/Resolving]
  - Diarrhoea [Not Recovered/Not Resolved]
  - Headache [Recovered/Resolved]
  - Platelet count decreased [Not Recovered/Not Resolved]
  - Abdominal discomfort [Not Recovered/Not Resolved]
  - Fatigue [Not Recovered/Not Resolved]
  - Swelling face [Not Recovered/Not Resolved]
  - Immune system disorder [Not Recovered/Not Resolved]
  - Abdominal pain [Not Recovered/Not Resolved]
  - Abdominal pain upper [Not Recovered/Not Resolved]
  - Myalgia [Recovered/Resolved]
  - Insomnia [Not Recovered/Not Resolved]
  - Stomatitis [Recovering/Resolving]
  - Platelet count abnormal [Recovered/Resolved]

NARRATIVE: CASE EVENT DATE: 2015
